FAERS Safety Report 12657633 (Version 1)
Quarter: 2016Q3

REPORT INFORMATION
  Report Type: Spontaneous
  Country: GB (occurrence: GB)
  Receive Date: 20160816
  Receipt Date: 20160816
  Transmission Date: 20161109
  Serious: Yes (Death, Hospitalization, Other)
  Sender: FDA-Public Use
  Company Number: GB-PFIZER INC-2781286

PATIENT
  Sex: Female

DRUGS (3)
  1. SODIUM CHLORIDE. [Suspect]
     Active Substance: SODIUM CHLORIDE
     Dosage: FREQ: 5 WEEK; INTERVAL: 1
     Route: 058
  2. WATER FOR INJECTION [Suspect]
     Active Substance: WATER
     Dosage: FREQ: 5 WEEK; INTERVAL: 1
     Route: 058
  3. DEFEROXAMINE MESILATE [Suspect]
     Active Substance: DEFEROXAMINE MESYLATE
     Indication: PRODUCT USED FOR UNKNOWN INDICATION
     Dosage: 2 G/35ML, FREQ: 5 WEEKS; INTERVAL:1
     Route: 058

REACTIONS (2)
  - Death [Fatal]
  - Malaise [Unknown]

NARRATIVE: CASE EVENT DATE: 201502
